FAERS Safety Report 4715389-3 (Version None)
Quarter: 2005Q3

REPORT INFORMATION
  Report Type: 
  Country: None (occurrence: None)
  Receive Date: 20050715
  Receipt Date: 20050705
  Transmission Date: 20060218
  Serious: Yes (Hospitalization)
  Sender: FDA-Public Use
  Company Number: JP-MERCK-0507USA01530

PATIENT
  Age: 66 Year
  Sex: Male

DRUGS (4)
  1. PEPCID RPD [Suspect]
     Route: 048
     Dates: start: 20050101, end: 20050530
  2. PEPCID RPD [Suspect]
     Route: 048
     Dates: start: 20050531, end: 20050704
  3. ANTIMICROBIAL (UNSPECIFIED) [Concomitant]
     Route: 048
     Dates: start: 20050520
  4. EXCEGRAN [Concomitant]
     Route: 048
     Dates: start: 20050604

REACTIONS (2)
  - NEUTROPHIL COUNT DECREASED [None]
  - WHITE BLOOD CELL COUNT DECREASED [None]
